FAERS Safety Report 6073527-7 (Version None)
Quarter: 2009Q1

REPORT INFORMATION
  Report Type: 
  Country: None (occurrence: None)
  Receive Date: 20090211
  Receipt Date: 20090202
  Transmission Date: 20090719
  Serious: Yes (Hospitalization)
  Sender: FDA-Public Use
  Company Number: US-ABBOTT-09P-163-0501203-00

PATIENT
  Sex: Female

DRUGS (1)
  1. ZEMPLAR CAPSULES 2MCG [Suspect]
     Indication: HYPERPARATHYROIDISM
     Dates: start: 20080801, end: 20090116

REACTIONS (7)
  - DYSPNOEA [None]
  - MALAISE [None]
  - MIGRAINE [None]
  - NAUSEA [None]
  - NON-CARDIAC CHEST PAIN [None]
  - RENAL IMPAIRMENT [None]
  - VOMITING [None]
